FAERS Safety Report 8313339-4 (Version None)
Quarter: 2012Q2

REPORT INFORMATION
  Report Type: 
  Country: None (occurrence: None)
  Receive Date: 20120426
  Receipt Date: 20120416
  Transmission Date: 20120825
  Serious: Yes (Other)
  Sender: FDA-Public Use
  Company Number: PHHY2011JP95602

PATIENT
  Sex: Female
  Weight: 45 kg

DRUGS (1)
  1. GLEEVEC [Suspect]
     Indication: ACUTE BIPHENOTYPIC LEUKAEMIA
     Dosage: 600 MG, DAILY
     Route: 048
     Dates: start: 20110322, end: 20110509

REACTIONS (4)
  - GASTRIC ANTRAL VASCULAR ECTASIA [None]
  - ABDOMINAL PAIN UPPER [None]
  - ANAEMIA [None]
  - GASTROINTESTINAL HAEMORRHAGE [None]
